FAERS Safety Report 9054624 (Version 1)
Quarter: 2013Q1

REPORT INFORMATION
  Report Type: Report from Study
  Country: JP (occurrence: JP)
  Receive Date: 20130208
  Receipt Date: 20130208
  Transmission Date: 20140127
  Serious: No
  Sender: FDA-Public Use
  Company Number: JP-JNJFOC-20130200540

PATIENT
  Age: 64 None
  Sex: Female
  Weight: 36 kg

DRUGS (9)
  1. ITRIZOLE [Suspect]
     Indication: ANTIFUNGAL PROPHYLAXIS
     Route: 048
     Dates: start: 20120919, end: 20121018
  2. AVELOX [Concomitant]
     Indication: PROPHYLAXIS
     Route: 048
     Dates: start: 20120919, end: 20121001
  3. PARIET [Concomitant]
     Route: 048
     Dates: start: 20120919, end: 20121016
  4. ZYLORIC [Concomitant]
     Route: 048
     Dates: start: 20120920, end: 20121002
  5. IDAMYCIN [Concomitant]
     Indication: ANTIFUNGAL PROPHYLAXIS
     Route: 042
     Dates: start: 20120919, end: 20120921
  6. CYLOCIDE [Concomitant]
     Indication: ANTIFUNGAL PROPHYLAXIS
     Route: 065
     Dates: start: 20120919, end: 20120926
  7. SLOW-K [Concomitant]
     Route: 048
     Dates: start: 20121005
  8. CEFEPIME DIHYDROCHLORIDE [Concomitant]
     Route: 065
     Dates: start: 20120929, end: 20121002
  9. MEROPEN (MEROPENEM TRIHYDRATE) [Concomitant]
     Route: 041
     Dates: start: 20121002, end: 20121018

REACTIONS (1)
  - Toxic skin eruption [Recovering/Resolving]
